FAERS Safety Report 6681944-7 (Version None)
Quarter: 2010Q2

REPORT INFORMATION
  Report Type: 
  Country: None (occurrence: None)
  Receive Date: 20100414
  Receipt Date: 20100325
  Transmission Date: 20101027
  Serious: Yes (Death, Hospitalization)
  Sender: FDA-Public Use
  Company Number: AU-GENENTECH-300207

PATIENT
  Sex: Male

DRUGS (6)
  1. RITUXIMAB [Suspect]
     Indication: DIFFUSE LARGE B-CELL LYMPHOMA
     Dosage: 375 MG/M2, UNK
     Route: 042
     Dates: start: 20100112
  2. CYCLOPHOSPHAMIDE [Suspect]
     Indication: DIFFUSE LARGE B-CELL LYMPHOMA
     Dosage: 750 MG/M2, UNK
     Route: 042
     Dates: start: 20100112
  3. DOXORUBICIN HCL [Suspect]
     Indication: DIFFUSE LARGE B-CELL LYMPHOMA
     Dosage: 50 MG/M2, UNK
     Route: 042
     Dates: start: 20100112
  4. VINCRISTINE [Suspect]
     Indication: DIFFUSE LARGE B-CELL LYMPHOMA
     Dosage: 2 MG/M2, UNK
     Route: 042
     Dates: start: 20100112
  5. VINCRISTINE [Suspect]
     Dosage: 1.4 MG/M2, UNK
     Route: 042
     Dates: start: 20100127
  6. PREDNISOLONE [Suspect]
     Indication: DIFFUSE LARGE B-CELL LYMPHOMA
     Dosage: UNK
     Route: 048

REACTIONS (4)
  - GAMMA-GLUTAMYLTRANSFERASE INCREASED [None]
  - HYPOTENSION [None]
  - INFECTION [None]
  - WEIGHT DECREASED [None]
